FAERS Safety Report 12381027 (Version 1)
Quarter: 2016Q2

REPORT INFORMATION
  Report Type: Report from Study
  Country: JP (occurrence: JP)
  Receive Date: 20160518
  Receipt Date: 20160518
  Transmission Date: 20160815
  Serious: Yes (Other)
  Sender: FDA-Public Use
  Company Number: JP-MYLANLABS-2016M1020529

PATIENT

DRUGS (5)
  1. ASPIRIN                            /00002701/ [Concomitant]
     Active Substance: ASPIRIN
     Indication: PRODUCT USED FOR UNKNOWN INDICATION
     Dosage: 100 MG FOR 24 WEEKS
     Route: 065
  2. ETHINYLESTRADIOL [Concomitant]
     Active Substance: ETHINYL ESTRADIOL
     Indication: PRODUCT USED FOR UNKNOWN INDICATION
     Dosage: 0.035 MG FOR 6 CYCLES
     Route: 065
  3. METFORMIN [Suspect]
     Active Substance: METFORMIN HYDROCHLORIDE
     Indication: ENDOMETRIAL DISORDER
     Dosage: 750 MG/DAY
     Route: 065
  4. MEDROXYPROGESTERONE [Suspect]
     Active Substance: MEDROXYPROGESTERONE
     Indication: ENDOMETRIAL DISORDER
     Dosage: 400 MG DAILY FOR 24 WEEKS
     Route: 048
  5. NORETHISTERONE [Concomitant]
     Active Substance: NORETHINDRONE
     Indication: PRODUCT USED FOR UNKNOWN INDICATION
     Dosage: 1 MG FOR 6 CYCLES
     Route: 065

REACTIONS (1)
  - Non-alcoholic steatohepatitis [Unknown]
